FAERS Safety Report 9584229 (Version 1)
Quarter: 2013Q4

REPORT INFORMATION
  Report Type: Spontaneous
  Country: US (occurrence: US)
  Receive Date: 20131002
  Receipt Date: 20131002
  Transmission Date: 20140711
  Serious: No
  Sender: FDA-Public Use
  Company Number: US-AMGEN-USASP2013052029

PATIENT
  Age: 50 Year
  Sex: Female
  Weight: 52.61 kg

DRUGS (3)
  1. ENBREL [Suspect]
     Indication: PRODUCT USED FOR UNKNOWN INDICATION
     Dosage: 50 MG, QWK
     Route: 058
     Dates: start: 20130519, end: 20130620
  2. KETOCONAZOLE [Concomitant]
     Dosage: 2 %, UNK
  3. PRAVASTATIN [Concomitant]
     Dosage: 20 MG, QD

REACTIONS (2)
  - Injection site reaction [Unknown]
  - Injection site erythema [Unknown]
